FAERS Safety Report 19630301 (Version 1)
Quarter: 2021Q3

REPORT INFORMATION
  Report Type: Spontaneous
  Country: GB (occurrence: GB)
  Receive Date: 20210729
  Receipt Date: 20210729
  Transmission Date: 20211014
  Serious: Yes (Other)
  Sender: FDA-Public Use
  Company Number: GB-MYLANLABS-2021M1045257

PATIENT
  Age: 30 Year
  Sex: Female
  Weight: 68 kg

DRUGS (7)
  1. CYCLIZINE [Concomitant]
     Active Substance: CYCLIZINE
     Indication: ILL-DEFINED DISORDER
     Dosage: TAKE UPTO TO BE TAKEN THREE TIMES DAILY
     Dates: start: 20200811
  2. GEDAREL [Concomitant]
     Indication: ILL-DEFINED DISORDER
     Dosage: TAKE BACK TO BACK PACKETS AND A FOUR DAY GAP AS...
     Dates: start: 20210407
  3. CALCIPOTRIOL [Concomitant]
     Active Substance: CALCIPOTRIENE
     Indication: ILL-DEFINED DISORDER
     Dosage: 1 DOSAGE FORM, QD (APPLY ONCE DAILY)
     Dates: start: 20210407
  4. NITROFURANTOIN MYLAN [Suspect]
     Active Substance: NITROFURANTOIN
     Indication: ILL-DEFINED DISORDER
     Dosage: UNK
     Dates: start: 20210705
  5. NAPROXEN. [Concomitant]
     Active Substance: NAPROXEN
     Indication: ILL-DEFINED DISORDER
     Dosage: TAKE ONE TABLET TWICE DAILY. TAKE WITH OMEPRAZO...
     Dates: start: 20210526
  6. OMEPRAZOLE. [Concomitant]
     Active Substance: OMEPRAZOLE
     Indication: ILL-DEFINED DISORDER
     Dosage: TAKE ONE CAPSULE DAILY TO PROTECT STOMACH WHEN ...
     Dates: start: 20210526
  7. NITROFURANTOIN. [Concomitant]
     Active Substance: NITROFURANTOIN
     Indication: URINARY TRACT INFECTION
     Dosage: 1 DOSAGE FORM, QD (1ST LINE): TAKE ONE CAPSULE
     Dates: start: 20210702, end: 20210705

REACTIONS (3)
  - Headache [Unknown]
  - Nausea [Recovered/Resolved]
  - Vomiting [Unknown]

NARRATIVE: CASE EVENT DATE: 20210705
